FAERS Safety Report 20820998 (Version 1)
Quarter: 2022Q2

REPORT INFORMATION
  Report Type: Spontaneous
  Country: US (occurrence: None)
  Receive Date: 20220512
  Receipt Date: 20220512
  Transmission Date: 20220721
  Serious: No
  Sender: FDA-Public Use
  Company Number: None

PATIENT

DRUGS (1)
  1. OCREVUS [Suspect]
     Active Substance: OCRELIZUMAB

REACTIONS (8)
  - Multiple sclerosis [None]
  - Fall [None]
  - Injury [None]
  - Muscle twitching [None]
  - Muscle twitching [None]
  - Headache [None]
  - Dysarthria [None]
  - Asthenia [None]
